FAERS Safety Report 8629622 (Version 2)
Quarter: 2014Q4

REPORT INFORMATION
  Report Type: Spontaneous
  Country: US (occurrence: US)
  Receive Date: 20120622
  Receipt Date: 20141002
  Transmission Date: 20150529
  Serious: Yes (Other)
  Sender: FDA-Public Use
  Company Number: US-BAYER-2012-061290

PATIENT
  Sex: Female

DRUGS (2)
  1. CIPRO [Suspect]
     Active Substance: CIPROFLOXACIN HYDROCHLORIDE
  2. LYRICA [Concomitant]
     Active Substance: PREGABALIN

REACTIONS (6)
  - Nerve injury [None]
  - Spinal column stenosis [None]
  - Bladder disorder [None]
  - Spinal column injury [None]
  - Drug hypersensitivity [None]
  - Abasia [None]
